FAERS Safety Report 7772246-6 (Version None)
Quarter: 2011Q3

REPORT INFORMATION
  Report Type: 
  Country: None (occurrence: None)
  Receive Date: 20110922
  Receipt Date: 20100318
  Transmission Date: 20111222
  Serious: No
  Sender: FDA-Public Use
  Company Number: US-ASTRAZENECA-2010SE52896

PATIENT
  Age: 16094 Day
  Sex: Female

DRUGS (9)
  1. LIPITOR [Concomitant]
     Dates: start: 20060310
  2. NORVASC [Concomitant]
     Dates: start: 20060210
  3. HYDROXYZINE [Concomitant]
     Dosage: 1-2 TABLETS
  4. ATROVENT [Concomitant]
     Dates: end: 20060310
  5. WELLBUTRIN [Concomitant]
     Dates: start: 20070216
  6. PRILOSEC [Concomitant]
     Dates: start: 20060310
  7. DEPAKOTE [Concomitant]
     Dates: start: 20070216
  8. GABAPENTIN [Concomitant]
     Dates: start: 20070216
  9. SEROQUEL [Suspect]
     Route: 048
     Dates: start: 20070216

REACTIONS (7)
  - GASTROOESOPHAGEAL REFLUX DISEASE [None]
  - DIABETES MELLITUS [None]
  - DRY SKIN [None]
  - CARPAL TUNNEL SYNDROME [None]
  - HYPERTENSION [None]
  - CHRONIC OBSTRUCTIVE PULMONARY DISEASE [None]
  - DYSLIPIDAEMIA [None]
